FAERS Safety Report 6975246-9 (Version None)
Quarter: 2010Q3

REPORT INFORMATION
  Report Type: 
  Country: None (occurrence: None)
  Receive Date: 20100910
  Receipt Date: 20090218
  Transmission Date: 20110219
  Serious: No
  Sender: FDA-Public Use
  Company Number: US-WYE-H08264309

PATIENT
  Sex: Female
  Weight: 69.01 kg

DRUGS (4)
  1. PRISTIQ [Suspect]
     Indication: DEPRESSION
     Route: 048
     Dates: start: 20090210, end: 20090211
  2. PRISTIQ [Suspect]
     Dosage: ^1/2 OF THE 50 MG TABLET^, PER MD ORDER
     Route: 048
     Dates: start: 20090212
  3. MENESIT [Concomitant]
  4. PRAVASTATIN [Concomitant]

REACTIONS (4)
  - ASTHENIA [None]
  - DRUG WITHDRAWAL SYNDROME [None]
  - FEELING ABNORMAL [None]
  - HEADACHE [None]
